FAERS Safety Report 19570092 (Version 46)
Quarter: 2025Q1

REPORT INFORMATION
  Report Type: Report from Study
  Country: US (occurrence: US)
  Receive Date: 20210716
  Receipt Date: 20250321
  Transmission Date: 20250409
  Serious: Yes (Hospitalization, Other)
  Sender: TAKEDA
  Company Number: US-TAKEDA-2021TUS039391

PATIENT
  Age: 71 Year
  Sex: Female
  Weight: 89 kg

DRUGS (64)
  1. HUMAN IMMUNOGLOBULIN G [Suspect]
     Active Substance: HUMAN IMMUNOGLOBULIN G
     Indication: Immune system disorder
     Dosage: 20 GRAM, Q2WEEKS
     Dates: start: 20210524
  2. HUMAN IMMUNOGLOBULIN G [Suspect]
     Active Substance: HUMAN IMMUNOGLOBULIN G
     Indication: Hyperglobulinaemia
     Dosage: 14 GRAM, Q2WEEKS
     Dates: start: 20210526
  3. HUMAN IMMUNOGLOBULIN G [Suspect]
     Active Substance: HUMAN IMMUNOGLOBULIN G
     Dosage: 20 GRAM, Q2WEEKS
  4. HUMAN IMMUNOGLOBULIN G [Suspect]
     Active Substance: HUMAN IMMUNOGLOBULIN G
     Dosage: 14 GRAM, Q2WEEKS
  5. DIPHENHYDRAMINE [Concomitant]
     Active Substance: DIPHENHYDRAMINE
  6. SULFAMETHOXAZOLE AND TRIMETHOPRIM [Concomitant]
     Active Substance: SULFAMETHOXAZOLE\TRIMETHOPRIM
  7. LEVOTHYROXINE [Concomitant]
     Active Substance: LEVOTHYROXINE
  8. ALBUTEROL SULFATE [Concomitant]
     Active Substance: ALBUTEROL SULFATE
  9. LYRICA [Concomitant]
     Active Substance: PREGABALIN
  10. EPINEPHRINE [Concomitant]
     Active Substance: EPINEPHRINE
  11. NIFEDIPINE [Concomitant]
     Active Substance: NIFEDIPINE
  12. FUROSEMIDE [Concomitant]
     Active Substance: FUROSEMIDE
  13. CEFPODOXIME PROXETIL [Concomitant]
     Active Substance: CEFPODOXIME PROXETIL
  14. COREG [Concomitant]
     Active Substance: CARVEDILOL
  15. PREDNISONE [Concomitant]
     Active Substance: PREDNISONE
  16. MYCOPHENOLATE MOFETIL [Concomitant]
     Active Substance: MYCOPHENOLATE MOFETIL
  17. NEXIUM [Concomitant]
     Active Substance: ESOMEPRAZOLE MAGNESIUM
  18. FLONASE ALLERGY RELIEF [Concomitant]
     Active Substance: FLUTICASONE PROPIONATE
  19. NOVOLOG [Concomitant]
     Active Substance: INSULIN ASPART
  20. CLONAZEPAM [Concomitant]
     Active Substance: CLONAZEPAM
  21. SODIUM BICARBONATE [Concomitant]
     Active Substance: SODIUM BICARBONATE
  22. SPIRONOLACTONE [Concomitant]
     Active Substance: SPIRONOLACTONE
  23. AMOXICILLIN [Concomitant]
     Active Substance: AMOXICILLIN
  24. ACETAMINOPHEN [Concomitant]
     Active Substance: ACETAMINOPHEN
  25. Lmx [Concomitant]
  26. CARVEDILOL [Concomitant]
     Active Substance: CARVEDILOL
  27. PRAVASTATIN SODIUM [Concomitant]
     Active Substance: PRAVASTATIN SODIUM
  28. DRISDOL [Concomitant]
     Active Substance: ERGOCALCIFEROL
  29. Amlodipine;Atorvastatin [Concomitant]
  30. FOLIC ACID [Concomitant]
     Active Substance: FOLIC ACID
  31. PROMETHAZINE HYDROCHLORIDE [Concomitant]
     Active Substance: PROMETHAZINE HYDROCHLORIDE
  32. TACROLIMUS [Concomitant]
     Active Substance: TACROLIMUS
  33. VENTOLIN HFA [Concomitant]
     Active Substance: ALBUTEROL SULFATE
  34. FLOVENT HFA [Concomitant]
     Active Substance: FLUTICASONE PROPIONATE
  35. LORATADINE [Concomitant]
     Active Substance: LORATADINE
  36. MAGNESIUM [Concomitant]
     Active Substance: MAGNESIUM
  37. HYDROCHLOROTHIAZIDE\LOSARTAN [Concomitant]
     Active Substance: HYDROCHLOROTHIAZIDE\LOSARTAN
  38. SPIRONOLACTONE AND HYDROCHLOROTHIAZIDE [Concomitant]
     Active Substance: HYDROCHLOROTHIAZIDE\SPIRONOLACTONE
  39. ASPIRIN [Concomitant]
     Active Substance: ASPIRIN
  40. CLONIDINE HYDROCHLORIDE [Concomitant]
     Active Substance: CLONIDINE HYDROCHLORIDE
  41. LIDOCAINE [Concomitant]
     Active Substance: LIDOCAINE
  42. HYDRALAZINE HCL [Concomitant]
     Active Substance: HYDRALAZINE HYDROCHLORIDE
  43. POTASSIUM CHLORIDE [Concomitant]
     Active Substance: POTASSIUM CHLORIDE
  44. ATORVASTATIN [Concomitant]
     Active Substance: ATORVASTATIN
  45. AMLODIPINE [Concomitant]
     Active Substance: AMLODIPINE BESYLATE
  46. BACTRIM [Concomitant]
     Active Substance: SULFAMETHOXAZOLE\TRIMETHOPRIM
  47. HYDROCHLOROTHIAZIDE [Concomitant]
     Active Substance: HYDROCHLOROTHIAZIDE
  48. Omega [Concomitant]
  49. TOBRAMYCIN [Concomitant]
     Active Substance: TOBRAMYCIN
  50. OMEPRAZOLE [Concomitant]
     Active Substance: OMEPRAZOLE
  51. MYCOPHENOLIC ACID [Concomitant]
     Active Substance: MYCOPHENOLIC ACID
  52. DIPHENHYDRAMINE HYDROCHLORIDE [Concomitant]
     Active Substance: DIPHENHYDRAMINE HYDROCHLORIDE
  53. HYDROCODONE BITARTRATE AND ACETAMINOPHEN [Concomitant]
     Active Substance: ACETAMINOPHEN\HYDROCODONE BITARTRATE
  54. EZETIMIBE [Concomitant]
     Active Substance: EZETIMIBE
  55. AZELASTINE [Concomitant]
     Active Substance: AZELASTINE
  56. HYDROCODONE [Concomitant]
     Active Substance: HYDROCODONE
  57. ACETAMINOPHEN\HYDROCODONE [Concomitant]
     Active Substance: ACETAMINOPHEN\HYDROCODONE
  58. AZELASTINE HYDROCHLORIDE [Concomitant]
     Active Substance: AZELASTINE HYDROCHLORIDE
  59. NOVOLOG [Concomitant]
     Active Substance: INSULIN ASPART
  60. POLYETHYLENE GLYCOL [Concomitant]
     Active Substance: POLYETHYLENE GLYCOL
  61. Robitussin honey [Concomitant]
  62. ELIQUIS [Concomitant]
     Active Substance: APIXABAN
  63. LOSARTAN POTASSIUM [Concomitant]
     Active Substance: LOSARTAN POTASSIUM
  64. LEVOTHYROXINE SODIUM [Concomitant]
     Active Substance: LEVOTHYROXINE SODIUM

REACTIONS (62)
  - Rectal haemorrhage [Unknown]
  - Respiratory tract infection [Unknown]
  - Bacterial infection [Unknown]
  - Kidney infection [Unknown]
  - Herpes zoster [Not Recovered/Not Resolved]
  - Blood creatinine abnormal [Unknown]
  - Blood pressure inadequately controlled [Unknown]
  - Cystitis [Unknown]
  - Blood sodium decreased [Unknown]
  - Haematochezia [Unknown]
  - Renal disorder [Unknown]
  - Pneumonia [Unknown]
  - Blood magnesium decreased [Unknown]
  - Pleural effusion [Unknown]
  - Gait disturbance [Unknown]
  - Gastrointestinal haemorrhage [Unknown]
  - Blood pressure abnormal [Unknown]
  - Diverticulitis [Unknown]
  - Oesophageal stenosis [Unknown]
  - Fluid retention [Unknown]
  - Thrombosis [Unknown]
  - Asthenia [Unknown]
  - Blood creatinine increased [Unknown]
  - Hypertension [Unknown]
  - Back pain [Unknown]
  - Dyspnoea [Unknown]
  - Headache [Unknown]
  - Sinus disorder [Unknown]
  - Sinus congestion [Unknown]
  - Neuralgia [Unknown]
  - Depression [Unknown]
  - Sinusitis [Unknown]
  - Infection [Unknown]
  - COVID-19 [Unknown]
  - Fall [Unknown]
  - Blood glucose decreased [Unknown]
  - Upper respiratory tract infection [Unknown]
  - Productive cough [Unknown]
  - Nerve injury [Unknown]
  - Faeces hard [Unknown]
  - Limb discomfort [Unknown]
  - Multiple allergies [Unknown]
  - Asthma [Unknown]
  - Gout [Unknown]
  - Varicose vein [Unknown]
  - Infusion site scar [Unknown]
  - Haemoptysis [Unknown]
  - Sputum discoloured [Unknown]
  - Infusion site discharge [Unknown]
  - Medication error [Unknown]
  - Contusion [Unknown]
  - Visual impairment [Unknown]
  - Abdominal distension [Unknown]
  - Malaise [Unknown]
  - Cough [Unknown]
  - Abdominal pain upper [Unknown]
  - Injection site pruritus [Unknown]
  - Pain [Unknown]
  - Arthralgia [Unknown]
  - Fatigue [Unknown]
  - Infusion site pain [Unknown]
  - Nausea [Unknown]

NARRATIVE: CASE EVENT DATE: 20220302
